FAERS Safety Report 6116499-9 (Version None)
Quarter: 2009Q1

REPORT INFORMATION
  Report Type: 
  Country: None (occurrence: None)
  Receive Date: 20090314
  Receipt Date: 20081215
  Transmission Date: 20090719
  Serious: No
  Sender: FDA-Public Use
  Company Number: US-ABBOTT-08P-163-0493044-00

PATIENT
  Sex: Female
  Weight: 85.806 kg

DRUGS (10)
  1. HUMIRA [Suspect]
     Indication: RHEUMATOID ARTHRITIS
     Route: 058
     Dates: start: 20081001
  2. HYDROCODONE BITARTRATE [Suspect]
     Indication: ARTHRALGIA
     Dosage: 2 IN ONE DAY AS REQUIRED
     Route: 048
  3. OXYCODONE HCL [Suspect]
     Indication: ARTHRALGIA
     Dosage: AS REQUIRED
     Route: 048
  4. PREDNISONE [Concomitant]
     Indication: RHEUMATOID ARTHRITIS
     Route: 048
  5. METHOTREXATE [Concomitant]
     Indication: RHEUMATOID ARTHRITIS
     Dosage: 5-2.5MG ONCE A WEEK
     Route: 048
  6. FOLIC ACID [Concomitant]
     Indication: VITAMIN SUPPLEMENTATION
     Route: 048
  7. FLUOXETINE [Concomitant]
     Indication: DEPRESSION
     Route: 048
  8. LORAZEPAM [Concomitant]
     Indication: ANXIETY
     Dosage: SCHEDULED AS TID, PT TAKES PRN
     Route: 048
  9. LOPRESSOR [Concomitant]
     Indication: HYPERTENSION
     Route: 048
  10. SYNTHROID [Concomitant]
     Indication: HYPOTHYROIDISM
     Route: 048

REACTIONS (2)
  - BACK PAIN [None]
  - RECTAL HAEMORRHAGE [None]
